FAERS Safety Report 16330474 (Version 1)
Quarter: 2019Q2

REPORT INFORMATION
  Report Type: Spontaneous
  Country: US (occurrence: US)
  Receive Date: 20190520
  Receipt Date: 20190520
  Transmission Date: 20190711
  Serious: Yes (Death, Life-Threatening, Hospitalization, Other)
  Sender: FDA-Public Use
  Company Number: US-BION-008023

PATIENT
  Age: 37 Year
  Sex: Female

DRUGS (1)
  1. BENZONATATE. [Suspect]
     Active Substance: BENZONATATE
     Dosage: INGESTED LESS THAN 30 PILLS OF BENZONATATE 200 MG CAPSULES WITH ALCOHOL

REACTIONS (8)
  - Cardiac arrest [Not Recovered/Not Resolved]
  - Brain injury [Fatal]
  - Unresponsive to stimuli [Unknown]
  - Respiratory acidosis [Not Recovered/Not Resolved]
  - Overdose [Unknown]
  - Seizure [Not Recovered/Not Resolved]
  - Hepatic enzyme increased [Not Recovered/Not Resolved]
  - Metabolic acidosis [Not Recovered/Not Resolved]
